FAERS Safety Report 9359083 (Version 1)
Quarter: 2013Q2

REPORT INFORMATION
  Report Type: Spontaneous
  Country: DK (occurrence: DK)
  Receive Date: 20130620
  Receipt Date: 20130620
  Transmission Date: 20140414
  Serious: Yes (Hospitalization)
  Sender: FDA-Public Use
  Company Number: DK-009507513-1306DNK008093

PATIENT
  Age: 68 Year
  Sex: Female

DRUGS (1)
  1. SYCREST [Suspect]
     Indication: MANIA
     Dosage: STYRKE: 5 MG
     Route: 060
     Dates: start: 20110615, end: 20130530

REACTIONS (3)
  - Muscle atrophy [Recovered/Resolved with Sequelae]
  - Muscular weakness [Recovered/Resolved with Sequelae]
  - Rhabdomyolysis [Recovered/Resolved with Sequelae]
